FAERS Safety Report 7263572-8 (Version None)
Quarter: 2011Q1

REPORT INFORMATION
  Report Type: 
  Country: None (occurrence: None)
  Receive Date: 20110130
  Receipt Date: 20101206
  Transmission Date: 20110831
  Serious: No
  Sender: FDA-Public Use
  Company Number: US-ABBOTT-10P-163-0689592-00

PATIENT
  Sex: Female
  Weight: 79.45 kg

DRUGS (8)
  1. FLEXERIL [Concomitant]
     Indication: PAIN
  2. VICODIN [Concomitant]
     Indication: PRODUCT USED FOR UNKNOWN INDICATION
  3. ULTRAM [Concomitant]
     Indication: PAIN
  4. CYMBALTA [Concomitant]
     Indication: DEPRESSION
  5. HUMIRA [Suspect]
     Indication: CROHN'S DISEASE
     Dates: start: 20101001, end: 20101220
  6. LIBRIUM [Concomitant]
     Indication: ANXIETY
  7. VERAPAMIL [Concomitant]
     Indication: HYPERTENSION
  8. ALDACTONE [Concomitant]
     Indication: FLUID RETENTION

REACTIONS (4)
  - DRUG INEFFECTIVE [None]
  - INCORRECT DOSE ADMINISTERED [None]
  - BLOOD POTASSIUM DECREASED [None]
  - DIARRHOEA [None]
